FAERS Safety Report 8262847-3 (Version None)
Quarter: 2012Q2

REPORT INFORMATION
  Report Type: 
  Country: None (occurrence: None)
  Receive Date: 20120405
  Receipt Date: 20120330
  Transmission Date: 20120825
  Serious: Yes (Hospitalization)
  Sender: FDA-Public Use
  Company Number: US-GLAXOSMITHKLINE-A0910416A

PATIENT
  Age: 63 Year
  Sex: Male

DRUGS (2)
  1. AVANDAMET [Suspect]
     Indication: DIABETES MELLITUS
     Dates: start: 20030101, end: 20060101
  2. AVANDIA [Suspect]
     Indication: DIABETES MELLITUS
     Dosage: 4MG TWICE PER DAY
     Route: 048
     Dates: start: 20060201, end: 20100729

REACTIONS (2)
  - MYOCARDIAL INFARCTION [None]
  - ARTERIAL OCCLUSIVE DISEASE [None]
